FAERS Safety Report 4698404-5 (Version None)
Quarter: 2005Q2

REPORT INFORMATION
  Report Type: 
  Country: None (occurrence: None)
  Receive Date: 20050621
  Receipt Date: 20050608
  Transmission Date: 20051028
  Serious: Yes (Hospitalization)
  Sender: FDA-Public Use
  Company Number: 05H-087-0300385-00

PATIENT
  Age: 18 Month
  Sex: Male
  Weight: 11 kg

DRUGS (3)
  1. AMINOPHYLLINE INJECTION (AMINOPHYLLINE) (AMINOPHYLLINE) [Suspect]
     Indication: ASTHMA
     Dosage: 250 MG, ONCE, INTRAVENOUS
     Route: 042
  2. SALBUTAMOLE (SALBUTAMOL) [Suspect]
     Indication: ASTHMA
  3. HYDROCORTISONE [Suspect]
     Indication: ASTHMA
     Dosage: 300 MG, ONCE, INTRAVENOUS
     Route: 042

REACTIONS (10)
  - DRUG INTERACTION POTENTIATION [None]
  - DRUG TOXICITY [None]
  - HYPERAMYLASAEMIA [None]
  - IRRITABILITY [None]
  - NAUSEA [None]
  - OVERDOSE [None]
  - PANCREATITIS [None]
  - TACHYCARDIA [None]
  - TACHYPNOEA [None]
  - VOMITING [None]
